FAERS Safety Report 23446703 (Version 5)
Quarter: 2024Q2

REPORT INFORMATION
  Report Type: Spontaneous
  Country: JP (occurrence: None)
  Receive Date: 20240126
  Receipt Date: 20240405
  Transmission Date: 20240716
  Serious: Yes (Life-Threatening, Hospitalization, Other)
  Sender: FDA-Public Use
  Company Number: 2024A016698

PATIENT
  Age: 81 Year
  Sex: Female
  Weight: 37 kg

DRUGS (12)
  1. TAGRISSO [Suspect]
     Active Substance: OSIMERTINIB
     Indication: Non-small cell lung cancer
     Route: 048
     Dates: start: 202310, end: 202312
  2. TAGRISSO [Suspect]
     Active Substance: OSIMERTINIB
     Indication: Non-small cell lung cancer
     Route: 048
     Dates: start: 20231018, end: 20231226
  3. MINOCYCLINE HYDROCHLORIDE [Concomitant]
     Active Substance: MINOCYCLINE HYDROCHLORIDE
     Indication: Paronychia
     Route: 048
     Dates: start: 20231213, end: 20231226
  4. DOMPERIDONE [Concomitant]
     Active Substance: DOMPERIDONE
     Indication: Chronic gastritis
     Dosage: 10.0MG AS REQUIRED
     Route: 048
     Dates: start: 20231213, end: 20231226
  5. FLUTICASONE FUROATE\VILANTEROL TRIFENATATE [Concomitant]
     Active Substance: FLUTICASONE FUROATE\VILANTEROL TRIFENATATE
     Indication: Asthma
     Route: 055
     Dates: start: 20231226, end: 20231226
  6. TSUMURA KAKKONTO EXTRACT GRANULES FOR ETHICAL USE [Concomitant]
     Dosage: 3 DOSES IN 1 DAY
     Route: 048
     Dates: end: 20231226
  7. FAMOTIDINE [Concomitant]
     Active Substance: FAMOTIDINE
     Indication: Chronic gastritis
     Dosage: 1 TABLET 1 DAY
     Route: 048
     Dates: start: 20231226
  8. MELOXICAM [Concomitant]
     Active Substance: MELOXICAM
     Indication: Pain
     Dosage: 1 TABLET 1 DAY
     Route: 048
     Dates: start: 20231226, end: 20231226
  9. BAZEDOXIFENE [Concomitant]
     Active Substance: BAZEDOXIFENE
     Indication: Osteoporosis
     Dosage: 1 TABLET 1 DAY
     Route: 048
     Dates: start: 20231226, end: 20231226
  10. ELDECALCITOL [Concomitant]
     Active Substance: ELDECALCITOL
     Indication: Osteoporosis
     Dosage: 1 TABLET 1 DAY
     Route: 048
     Dates: start: 20231226
  11. HEPARINOID [Concomitant]
     Indication: Paronychia
     Dosage: 1 TABLET 1 DAY
     Route: 062
  12. LOXOPROFEN SODIUM [Concomitant]
     Active Substance: LOXOPROFEN SODIUM
     Indication: Pain
     Dosage: 1 TABLET 1 DAY
     Route: 062

REACTIONS (9)
  - Rhabdomyolysis [Recovered/Resolved]
  - Long QT syndrome [Recovered/Resolved]
  - Platelet count decreased [Recovering/Resolving]
  - Drug-induced liver injury [Recovering/Resolving]
  - Ventricular extrasystoles [Recovered/Resolved]
  - Hypercreatinaemia [Recovering/Resolving]
  - Blood creatine phosphokinase increased [Recovered/Resolved]
  - Diarrhoea [Recovering/Resolving]
  - Paronychia [Recovering/Resolving]

NARRATIVE: CASE EVENT DATE: 20231031
